FAERS Safety Report 5823275-0 (Version None)
Quarter: 2008Q3

REPORT INFORMATION
  Report Type: 
  Country: None (occurrence: None)
  Receive Date: 20080725
  Receipt Date: 20080724
  Transmission Date: 20090109
  Serious: Yes (Death, Other)
  Sender: FDA-Public Use
  Company Number: US-ASTRAZENECA-2008UW14502

PATIENT
  Sex: Male

DRUGS (1)
  1. CASODEX [Suspect]

REACTIONS (2)
  - DEATH [None]
  - MYOCARDIAL INFARCTION [None]
